FAERS Safety Report 8819290 (Version 5)
Quarter: 2013Q1

REPORT INFORMATION
  Report Type: Spontaneous
  Country: US (occurrence: US)
  Receive Date: 20121001
  Receipt Date: 20130125
  Transmission Date: 20140127
  Serious: Yes (Death, Other)
  Sender: FDA-Public Use
  Company Number: US-CELGENEUS-163-21880-12093159

PATIENT
  Age: 83 Year
  Sex: Male

DRUGS (14)
  1. REVLIMID [Suspect]
     Indication: PLASMA CELL MYELOMA
     Dosage: 15 MILLIGRAM
     Route: 048
     Dates: start: 20120821, end: 20120921
  2. FENTANYL PATCH [Concomitant]
     Indication: PAIN
     Dosage: 4 MICROGRAM
     Route: 062
     Dates: start: 20120904
  3. BP MED [Concomitant]
     Indication: BLOOD PRESSURE
     Route: 065
  4. ACETAMINOPHEN [Concomitant]
     Indication: PAIN
     Dosage: 650 MILLIGRAM
     Route: 048
  5. ACETAMINOPHEN [Concomitant]
     Indication: PYREXIA
  6. ALLOPURINOL [Concomitant]
     Indication: GOUT
     Dosage: 300 MILLIGRAM
     Route: 048
     Dates: start: 20120906
  7. CEFDINIR [Concomitant]
     Indication: INFECTION
     Dosage: 600 MILLIGRAM
     Route: 048
     Dates: start: 20120906
  8. DEXAMETHASONE [Concomitant]
     Indication: PRODUCT USED FOR UNKNOWN INDICATION
     Dosage: 5.7143 MILLIGRAM
     Route: 048
     Dates: start: 20120904
  9. FAMOTIDINE [Concomitant]
     Indication: PRODUCT USED FOR UNKNOWN INDICATION
     Dosage: 40 MILLIGRAM
     Route: 048
     Dates: start: 20120906
  10. OXYCODONE [Concomitant]
     Indication: PAIN
     Dosage: 5 MILLIGRAM
     Route: 048
  11. POLYETHYLENE GLYCOL [Concomitant]
     Indication: CONSTIPATION
     Dosage: 17 GRAM
     Route: 048
  12. SENNA [Concomitant]
     Indication: CONSTIPATION
     Dosage: 4 TABLET
     Route: 048
     Dates: start: 20120905
  13. VALACYCLOVIR HCL [Concomitant]
     Indication: INFECTION
     Dosage: 1000 MILLIGRAM
     Route: 048
  14. WARFARIN [Concomitant]
     Indication: THROMBOSIS PROPHYLAXIS
     Dosage: 7.5 MILLIGRAM
     Route: 048
     Dates: start: 20120905

REACTIONS (3)
  - Plasma cell myeloma [Fatal]
  - Sepsis [Fatal]
  - Urinary tract infection [Unknown]
